FAERS Safety Report 18660211 (Version 1)
Quarter: 2020Q4

REPORT INFORMATION
  Report Type: Spontaneous
  Country: IT (occurrence: IT)
  Receive Date: 20201223
  Receipt Date: 20201223
  Transmission Date: 20210114
  Serious: Yes (Hospitalization)
  Sender: FDA-Public Use
  Company Number: IT-ROCHE-2736319

PATIENT
  Age: 46 Year
  Sex: Male

DRUGS (2)
  1. XARELTO [Concomitant]
     Active Substance: RIVAROXABAN
     Indication: DEEP VEIN THROMBOSIS
     Route: 048
  2. RIVOTRIL [Suspect]
     Active Substance: CLONAZEPAM
     Indication: DRUG ABUSE
     Route: 048
     Dates: start: 20190519, end: 20190519

REACTIONS (3)
  - Drug abuse [Unknown]
  - Intentional self-injury [Recovering/Resolving]
  - Psychomotor hyperactivity [Recovering/Resolving]

NARRATIVE: CASE EVENT DATE: 20190519
